FAERS Safety Report 6537938-5 (Version None)
Quarter: 2010Q1

REPORT INFORMATION
  Report Type: 
  Country: None (occurrence: None)
  Receive Date: 20100114
  Receipt Date: 20100104
  Transmission Date: 20100710
  Serious: Yes (Life-Threatening, Hospitalization, Congenital Anomaly)
  Sender: FDA-Public Use
  Company Number: BR-KINGPHARMUSA00001-K200901590

PATIENT

DRUGS (2)
  1. TAPAZOLE [Suspect]
     Dosage: 20 MG, QD
     Route: 064
  2. PROPYLTHIOURACIL TAB [Suspect]
     Dosage: UNK
     Route: 064

REACTIONS (5)
  - APLASIA CUTIS CONGENITA [None]
  - CHOANAL ATRESIA [None]
  - NEONATAL RESPIRATORY DISTRESS SYNDROME [None]
  - PREMATURE BABY [None]
  - SKIN LESION [None]
